FAERS Safety Report 8807117 (Version 3)
Quarter: 2012Q4

REPORT INFORMATION
  Report Type: 
  Country: PT (occurrence: PT)
  Receive Date: 20120925
  Receipt Date: 20121116
  Transmission Date: 20130627
  Serious: Yes (Other)
  Sender: FDA-Public Use
  Company Number: PT-PFIZER INC-2012233051

PATIENT
  Age: 59 Year
  Sex: Male
  Weight: 77 kg

DRUGS (1)
  1. ATORVASTATINA PARKE-DAVIS [Suspect]
     Indication: DYSLIPIDAEMIA
     Dosage: 10mg 1x/day
     Route: 048
     Dates: start: 20120810, end: 20120817

REACTIONS (3)
  - Paraesthesia [Recovered/Resolved]
  - Erectile dysfunction [Recovered/Resolved]
  - Product substitution issue [Recovered/Resolved]
